FAERS Safety Report 5655800-7 (Version None)
Quarter: 2008Q1

REPORT INFORMATION
  Report Type: 
  Country: None (occurrence: None)
  Receive Date: 20080307
  Receipt Date: 20080225
  Transmission Date: 20080703
  Serious: Yes (Other)
  Sender: FDA-Public Use
  Company Number: US-PFIZER INC-2007107794

PATIENT
  Sex: Male
  Weight: 93.181 kg

DRUGS (2)
  1. DILANTIN [Suspect]
     Indication: CONVULSION
     Route: 048
  2. TRAZODONE HCL [Concomitant]

REACTIONS (7)
  - ABDOMINAL PAIN UPPER [None]
  - CONVULSION [None]
  - FATIGUE [None]
  - HAEMATOCHEZIA [None]
  - LIVER DISORDER [None]
  - NAUSEA [None]
  - THERAPEUTIC RESPONSE DECREASED [None]
